FAERS Safety Report 4283588-3 (Version None)
Quarter: 2004Q1

REPORT INFORMATION
  Report Type: 
  Country: None (occurrence: None)
  Receive Date: 20040121
  Receipt Date: 20030922
  Transmission Date: 20041129
  Serious: Yes (Other)
  Sender: FDA-Public Use
  Company Number: A03200302204

PATIENT

DRUGS (3)
  1. PLAVIX [Suspect]
     Indication: ANGIOPLASTY
     Dosage: ORAL
     Route: 048
  2. BETA BLOCKER NOS [Concomitant]
  3. ATORVASTATIN [Concomitant]

REACTIONS (1)
  - ANGIONEUROTIC OEDEMA [None]
